FAERS Safety Report 8949461 (Version 3)
Quarter: 2013Q1

REPORT INFORMATION
  Report Type: Spontaneous
  Country: CA (occurrence: CA)
  Receive Date: 20121206
  Receipt Date: 20130107
  Transmission Date: 20140127
  Serious: Yes (Hospitalization, Other)
  Sender: FDA-Public Use
  Company Number: CA-PFIZER INC-2012301905

PATIENT
  Age: 35 Year
  Sex: Male

DRUGS (4)
  1. SUTENT [Suspect]
     Indication: RENAL CELL CARCINOMA
     Dosage: 50 MG, 1X/DAY FOR 2 WEEKS THEN OFF FOR 1 WEEK
     Dates: start: 200704
  2. NORVASC [Concomitant]
     Dosage: 10 MG, 1X/DAY
  3. DIOVAN [Concomitant]
     Indication: HYPERTENSION
     Dosage: 160 MG, 1X/DAY
  4. ATENOLOL [Concomitant]
     Indication: HYPERTENSION

REACTIONS (5)
  - Myocardial infarction [Recovering/Resolving]
  - Cardiogenic shock [Unknown]
  - Hypertension [Unknown]
  - Hypothyroidism [Unknown]
  - Dyslipidaemia [Unknown]
